FAERS Safety Report 5137502-9 (Version None)
Quarter: 2006Q4

REPORT INFORMATION
  Report Type: 
  Country: None (occurrence: None)
  Receive Date: 20061030
  Receipt Date: 20051110
  Transmission Date: 20070319
  Serious: No
  Sender: FDA-Public Use
  Company Number: US-GLAXOSMITHKLINE-A0581844A

PATIENT
  Age: 45 Year
  Sex: Male
  Weight: 163.6 kg

DRUGS (1)
  1. ADVAIR HFA [Suspect]
     Indication: DRUG USE FOR UNKNOWN INDICATION
     Route: 055
     Dates: start: 20050811, end: 20051107

REACTIONS (2)
  - ADVERSE EVENT [None]
  - FOREIGN BODY TRAUMA [None]
